FAERS Safety Report 5315643-0 (Version None)
Quarter: 2007Q2

REPORT INFORMATION
  Report Type: 
  Country: None (occurrence: None)
  Receive Date: 20070503
  Receipt Date: 20070426
  Transmission Date: 20071010
  Serious: Yes (Hospitalization)
  Sender: FDA-Public Use
  Company Number: US-GENENTECH-240546

PATIENT
  Sex: Female
  Weight: 86.168 kg

DRUGS (2)
  1. RAPTIVA [Suspect]
     Indication: PSORIASIS
     Dosage: 90 MG, 1/WEEK
     Route: 058
     Dates: start: 20070416, end: 20070423
  2. SORIATANE [Concomitant]
     Indication: PSORIASIS

REACTIONS (2)
  - BLOOD GLUCOSE INCREASED [None]
  - MIGRAINE [None]
